FAERS Safety Report 22042780 (Version 2)
Quarter: 2024Q3

REPORT INFORMATION
  Report Type: Spontaneous
  Country: CN (occurrence: CN)
  Receive Date: 20230228
  Receipt Date: 20240830
  Transmission Date: 20241017
  Serious: Yes (Other)
  Sender: NOVARTIS
  Company Number: CN-002147023-NVSC2023CN040924

PATIENT
  Age: 68 Year
  Sex: Female
  Weight: 60 kg

DRUGS (42)
  1. PARLODEL [Suspect]
     Active Substance: BROMOCRIPTINE MESYLATE
     Indication: Cerebral haemorrhage
     Dosage: 2.5 MG, QD, FOR 5 DAYS
     Route: 048
     Dates: start: 20211231, end: 20220104
  2. PARLODEL [Suspect]
     Active Substance: BROMOCRIPTINE MESYLATE
     Indication: Hydrocephalus
  3. PARLODEL [Suspect]
     Active Substance: BROMOCRIPTINE MESYLATE
     Indication: Intracranial infection
  4. PARLODEL [Suspect]
     Active Substance: BROMOCRIPTINE MESYLATE
     Indication: Epilepsy
  5. PARLODEL [Suspect]
     Active Substance: BROMOCRIPTINE MESYLATE
     Indication: Post stroke depression
  6. PARLODEL [Suspect]
     Active Substance: BROMOCRIPTINE MESYLATE
     Indication: Intracranial aneurysm
  7. OXCARBAZEPINE [Suspect]
     Active Substance: OXCARBAZEPINE
     Indication: Cerebral haemorrhage
     Dosage: 0.6 G, Q12H
     Route: 048
     Dates: start: 20211231, end: 20220107
  8. OXCARBAZEPINE [Suspect]
     Active Substance: OXCARBAZEPINE
     Indication: Hydrocephalus
  9. OXCARBAZEPINE [Suspect]
     Active Substance: OXCARBAZEPINE
     Indication: Intracranial infection
  10. OXCARBAZEPINE [Suspect]
     Active Substance: OXCARBAZEPINE
     Indication: Epilepsy
  11. OXCARBAZEPINE [Suspect]
     Active Substance: OXCARBAZEPINE
     Indication: Post stroke depression
  12. OXCARBAZEPINE [Suspect]
     Active Substance: OXCARBAZEPINE
     Indication: Intracranial aneurysm
  13. VALPROATE SODIUM [Suspect]
     Active Substance: VALPROATE SODIUM
     Indication: Cerebral haemorrhage
     Dosage: 10 ML, BID
     Route: 048
     Dates: start: 20211231, end: 20220104
  14. VALPROATE SODIUM [Suspect]
     Active Substance: VALPROATE SODIUM
     Indication: Hydrocephalus
  15. VALPROATE SODIUM [Suspect]
     Active Substance: VALPROATE SODIUM
     Indication: Intracranial infection
  16. VALPROATE SODIUM [Suspect]
     Active Substance: VALPROATE SODIUM
     Indication: Epilepsy
  17. VALPROATE SODIUM [Suspect]
     Active Substance: VALPROATE SODIUM
     Indication: Post stroke depression
  18. VALPROATE SODIUM [Suspect]
     Active Substance: VALPROATE SODIUM
     Indication: Intracranial aneurysm
  19. METOPROLOL TARTRATE [Suspect]
     Active Substance: METOPROLOL TARTRATE
     Indication: Cerebral haemorrhage
     Dosage: 25 MG, BID
     Route: 065
     Dates: start: 20211231, end: 20220104
  20. METOPROLOL TARTRATE [Suspect]
     Active Substance: METOPROLOL TARTRATE
     Indication: Hydrocephalus
  21. METOPROLOL TARTRATE [Suspect]
     Active Substance: METOPROLOL TARTRATE
     Indication: Intracranial infection
  22. METOPROLOL TARTRATE [Suspect]
     Active Substance: METOPROLOL TARTRATE
     Indication: Epilepsy
  23. METOPROLOL TARTRATE [Suspect]
     Active Substance: METOPROLOL TARTRATE
     Indication: Post stroke depression
  24. METOPROLOL TARTRATE [Suspect]
     Active Substance: METOPROLOL TARTRATE
     Indication: Intracranial aneurysm
  25. FLUOXETINE HYDROCHLORIDE [Suspect]
     Active Substance: FLUOXETINE HYDROCHLORIDE
     Indication: Cerebral haemorrhage
     Dosage: 20 MG, QD
     Route: 048
     Dates: start: 20211231, end: 20220104
  26. FLUOXETINE HYDROCHLORIDE [Suspect]
     Active Substance: FLUOXETINE HYDROCHLORIDE
     Indication: Hydrocephalus
  27. FLUOXETINE HYDROCHLORIDE [Suspect]
     Active Substance: FLUOXETINE HYDROCHLORIDE
     Indication: Intracranial infection
  28. FLUOXETINE HYDROCHLORIDE [Suspect]
     Active Substance: FLUOXETINE HYDROCHLORIDE
     Indication: Epilepsy
  29. FLUOXETINE HYDROCHLORIDE [Suspect]
     Active Substance: FLUOXETINE HYDROCHLORIDE
     Indication: Post stroke depression
  30. FLUOXETINE HYDROCHLORIDE [Suspect]
     Active Substance: FLUOXETINE HYDROCHLORIDE
     Indication: Intracranial aneurysm
  31. METHYLCOBALAMIN [Suspect]
     Active Substance: METHYLCOBALAMIN
     Indication: Cerebral haemorrhage
     Dosage: 0.5 MG, TID
     Route: 048
     Dates: start: 20211231, end: 20220104
  32. METHYLCOBALAMIN [Suspect]
     Active Substance: METHYLCOBALAMIN
     Indication: Hydrocephalus
  33. METHYLCOBALAMIN [Suspect]
     Active Substance: METHYLCOBALAMIN
     Indication: Intracranial infection
  34. METHYLCOBALAMIN [Suspect]
     Active Substance: METHYLCOBALAMIN
     Indication: Epilepsy
  35. METHYLCOBALAMIN [Suspect]
     Active Substance: METHYLCOBALAMIN
     Indication: Post stroke depression
  36. METHYLCOBALAMIN [Suspect]
     Active Substance: METHYLCOBALAMIN
     Indication: Intracranial aneurysm
  37. ORYZANOL [Suspect]
     Active Substance: GAMMA ORYZANOL
     Indication: Cerebral haemorrhage
     Dosage: 10 MG, TID
     Route: 048
     Dates: start: 20211231, end: 20220104
  38. ORYZANOL [Suspect]
     Active Substance: GAMMA ORYZANOL
     Indication: Hydrocephalus
  39. ORYZANOL [Suspect]
     Active Substance: GAMMA ORYZANOL
     Indication: Intracranial infection
  40. ORYZANOL [Suspect]
     Active Substance: GAMMA ORYZANOL
     Indication: Epilepsy
  41. ORYZANOL [Suspect]
     Active Substance: GAMMA ORYZANOL
     Indication: Post stroke depression
  42. ORYZANOL [Suspect]
     Active Substance: GAMMA ORYZANOL
     Indication: Intracranial aneurysm

REACTIONS (5)
  - Drug hypersensitivity [Recovering/Resolving]
  - Rash [Recovering/Resolving]
  - Rash [Recovering/Resolving]
  - Drug eruption [Recovering/Resolving]
  - Product use in unapproved indication [Unknown]

NARRATIVE: CASE EVENT DATE: 20220104
